FAERS Safety Report 24043232 (Version 5)
Quarter: 2024Q3

REPORT INFORMATION
  Report Type: Report from Study
  Country: US (occurrence: US)
  Receive Date: 20240702
  Receipt Date: 20240726
  Transmission Date: 20241016
  Serious: Yes (Other)
  Sender: ABBVIE
  Company Number: US-ABBVIE-5819904

PATIENT
  Age: 73 Year
  Sex: Female

DRUGS (43)
  1. SKYRIZI [Suspect]
     Active Substance: RISANKIZUMAB-RZAA
     Indication: Psoriasis
     Route: 058
     Dates: start: 20210414
  2. ZESTRIL [Concomitant]
     Active Substance: LISINOPRIL
     Indication: Product used for unknown indication
     Route: 048
  3. DITROPAN [Concomitant]
     Active Substance: OXYBUTYNIN CHLORIDE
     Indication: Product used for unknown indication
     Dosage: TIME INTERVAL: 0.33333333 DAYS
     Route: 048
     Dates: start: 20230219
  4. PROTONIX [Concomitant]
     Active Substance: PANTOPRAZOLE SODIUM
     Indication: Product used for unknown indication
     Dosage: EC
     Route: 048
     Dates: start: 20230219
  5. VALTREX [Concomitant]
     Active Substance: VALACYCLOVIR HYDROCHLORIDE
     Indication: Product used for unknown indication
     Route: 048
     Dates: start: 20230219
  6. LIPITOR [Concomitant]
     Active Substance: ATORVASTATIN CALCIUM
     Indication: Product used for unknown indication
     Dosage: FREQUENCY NIGHTLY
     Route: 048
     Dates: start: 20230219
  7. HEPARIN SODIUM, PORCINE [Concomitant]
     Active Substance: HEPARIN SODIUM
     Indication: Product used for unknown indication
     Dosage: TIME INTERVAL: 0.33333333 DAYS: 5000 UNITS
     Route: 058
     Dates: start: 20230219
  8. BENGAY ARTHRITIS PAIN RELIEVING [Concomitant]
     Active Substance: MENTHOL\METHYL SALICYLATE
     Indication: Product used for unknown indication
     Dosage: TIME INTERVAL: 0.33333333 DAYS: 15-10 % TOPICAL CREAM
     Route: 061
     Dates: start: 20230220
  9. REGLAN [Concomitant]
     Active Substance: METOCLOPRAMIDE HYDROCHLORIDE
     Indication: Product used for unknown indication
  10. HYDRODIURIL [Concomitant]
     Active Substance: HYDROCHLOROTHIAZIDE
     Indication: Product used for unknown indication
     Route: 048
     Dates: start: 20230219
  11. PLAQUENIL [Concomitant]
     Active Substance: HYDROXYCHLOROQUINE SULFATE
     Indication: Product used for unknown indication
     Route: 048
     Dates: start: 20230219
  12. NOVOLOG [Concomitant]
     Active Substance: INSULIN ASPART
     Indication: Product used for unknown indication
     Dosage: TIME INTERVAL: 0.33333333 DAYS: U-100?WITH MEALS?1-5 UNITS
     Route: 058
     Dates: start: 20230219
  13. ACETAMINOPHEN [Concomitant]
     Active Substance: ACETAMINOPHEN
     Indication: Product used for unknown indication
     Dosage: TYLENOL
     Route: 048
     Dates: start: 20230220
  14. BENADRYL [Concomitant]
     Active Substance: DIPHENHYDRAMINE HYDROCHLORIDE
     Indication: Product used for unknown indication
     Dosage: IV PUSH
  15. ROBITUSSIN (GUAIFENESIN) [Concomitant]
     Active Substance: GUAIFENESIN
     Indication: Product used for unknown indication
     Dosage: 100 MG/5 ML
     Route: 048
     Dates: start: 20230219
  16. ZOFRAN [Concomitant]
     Active Substance: ONDANSETRON HYDROCHLORIDE
     Indication: Product used for unknown indication
     Dosage: ZOFRAN-ODT?DISINTEGRATING TABLET
     Route: 048
  17. COMPAZINE [Concomitant]
     Active Substance: PROCHLORPERAZINE MALEATE
     Indication: Product used for unknown indication
     Route: 054
  18. SODIUM CHLORIDE [Concomitant]
     Active Substance: SODIUM CHLORIDE
     Indication: Product used for unknown indication
     Dosage: 0.9%  CONTINUES
     Route: 058
     Dates: start: 20230220
  19. CUBICIN [Concomitant]
     Active Substance: DAPTOMYCIN
     Indication: Product used for unknown indication
     Route: 042
  20. LACTATED RINGERS SOLUTION [Concomitant]
     Active Substance: CALCIUM CHLORIDE\POTASSIUM CHLORIDE\SODIUM CHLORIDE\SODIUM LACTATE
     Indication: Product used for unknown indication
     Dosage: ONCE
     Route: 042
  21. NORCO [Concomitant]
     Active Substance: ACETAMINOPHEN\HYDROCODONE BITARTRATE
     Indication: Product used for unknown indication
     Dosage: TIME INTERVAL: AS NECESSARY: 5-325 MG PER TABLET?EVERY 6 HOURS
     Route: 048
  22. BACTRIM DS [Concomitant]
     Active Substance: SULFAMETHOXAZOLE\TRIMETHOPRIM
     Indication: Product used for unknown indication
     Route: 048
  23. HIPREX [Concomitant]
     Active Substance: METHENAMINE HIPPURATE
     Indication: Product used for unknown indication
     Route: 048
     Dates: start: 20230310
  24. AZELASTINE [Concomitant]
     Active Substance: AZELASTINE\AZELASTINE HYDROCHLORIDE
     Indication: Product used for unknown indication
     Dosage: 137 MCG (0.1 %) NASAL SPRAY?1 SPRAY BY NASAL ROUTE. USE IN EACH NOSTRIL AS DIRECTED
     Route: 045
  25. DICLOFENAC SODIUM [Concomitant]
     Active Substance: DICLOFENAC\DICLOFENAC SODIUM
     Indication: Product used for unknown indication
     Dosage: DICLOFENAC SODIUM 1 % GEL TOPICAL GEL
     Route: 061
  26. ESTRADIOL [Concomitant]
     Active Substance: ESTRADIOL
     Indication: Product used for unknown indication
     Dosage: TIME INTERVAL: 0.33333333 WEEKS
     Route: 067
  27. FLUTICASONE PROPIONATE [Concomitant]
     Active Substance: FLUTICASONE PROPIONATE
     Indication: Product used for unknown indication
     Dosage: 0.05 % CREAM
     Route: 061
  28. NIZORAL [Concomitant]
     Active Substance: KETOCONAZOLE
     Indication: Product used for unknown indication
     Dosage: 2% CREAM?APPLY 1 APPLICATION
     Route: 061
  29. GLUCOPHAGE [Concomitant]
     Active Substance: METFORMIN HYDROCHLORIDE
     Indication: Product used for unknown indication
     Dosage: 1 TABLET
     Route: 048
     Dates: end: 20230217
  30. MYCOSTATIN [Concomitant]
     Active Substance: NYSTATIN
     Indication: Product used for unknown indication
  31. ZOCOR [Concomitant]
     Active Substance: SIMVASTATIN
     Indication: Product used for unknown indication
     Dosage: EVERY EVENING BEFORE DINNER
     Route: 048
  32. BRIDION [Concomitant]
     Active Substance: SUGAMMADEX
     Indication: Product used for unknown indication
     Dosage: 100MG/ML IV SOLUTION?IVPUSH
     Dates: start: 20230220
  33. OFIRMEV [Concomitant]
     Active Substance: ACETAMINOPHEN
     Indication: Product used for unknown indication
     Dosage: IVPB
     Dates: start: 20230220
  34. Pfizer BioNTech COVID-19 vaccine, bivalent [Concomitant]
     Indication: COVID-19 immunisation
     Dosage: PFIZER-BIONTECH SARS-COV-2 BIVALENT BOOSTER ?VACCINATION
     Dates: start: 20220913
  35. PFIZER-BIONTECH COVID-19 VACCINE [Concomitant]
     Active Substance: TOZINAMERAN
     Indication: COVID-19 immunisation
     Dosage: PFIZER-BIONTECH SARS-COV-2 VACCINATION (GRAY CAP)
     Dates: start: 20240407
  36. PFIZER-BIONTECH COVID-19 VACCINE [Concomitant]
     Active Substance: TOZINAMERAN
     Indication: COVID-19 immunisation
     Dosage: PFIZER-BIONTECH SARS-COV-2 VACCINATION (PURPLE ?CAP)
     Dates: start: 20210917
  37. INFLUENZA VIRUS VACCINE [Concomitant]
     Active Substance: INFLUENZA VIRUS VACCINE
     Indication: Product used for unknown indication
     Dosage: INFLUENZA (HIGH DOSE) QUAD
     Dates: start: 20220901
  38. VERSED [Concomitant]
     Active Substance: MIDAZOLAM HYDROCHLORIDE
     Indication: Product used for unknown indication
     Dosage: IV PUSH
     Dates: start: 20230220
  39. SUBLIMAZE [Concomitant]
     Active Substance: FENTANYL CITRATE
     Indication: Product used for unknown indication
     Dosage: IV PUSH
     Dates: start: 20230220
  40. PRECEDEX [Concomitant]
     Active Substance: DEXMEDETOMIDINE HYDROCHLORIDE
     Indication: Product used for unknown indication
     Dosage: IV PUSH
     Dates: start: 20230220
  41. XYLOCAINE [Concomitant]
     Active Substance: LIDOCAINE HYDROCHLORIDE\LIDOCAINE HYDROCHLORIDE ANHYDROUS
     Indication: Product used for unknown indication
     Route: 050
     Dates: start: 20230220
  42. DIPRIVAN [Concomitant]
     Active Substance: ISOPROPYL ALCOHOL\PROPOFOL
     Indication: Product used for unknown indication
     Dosage: 10MG/ML?IV PUSH
     Dates: start: 20230220
  43. ZEMURON [Concomitant]
     Active Substance: ROCURONIUM BROMIDE
     Indication: Product used for unknown indication
     Dosage: 10 MG/ML?IV PUSH
     Dates: start: 20230220

REACTIONS (17)
  - Staphylococcal abscess [Recovering/Resolving]
  - Abdominal wall abscess [Recovered/Resolved]
  - Urinary tract infection [Unknown]
  - Medical device site pain [Recovered/Resolved]
  - Abdominal wall wound [Unknown]
  - Trigger finger [Unknown]
  - Essential hypertension [Unknown]
  - Osteoarthritis [Unknown]
  - Hypertonic bladder [Unknown]
  - Gastrooesophageal reflux disease [Unknown]
  - Oedema peripheral [Unknown]
  - Hypoglycaemia [Unknown]
  - Varicose vein [Unknown]
  - Oedema peripheral [Unknown]
  - Osteopenia [Unknown]
  - Immunosuppression [Unknown]
  - Obesity [Unknown]

NARRATIVE: CASE EVENT DATE: 20210723
